FAERS Safety Report 7605868-3 (Version None)
Quarter: 2011Q3

REPORT INFORMATION
  Report Type: 
  Country: None (occurrence: None)
  Receive Date: 20110713
  Receipt Date: 20110708
  Transmission Date: 20111222
  Serious: Yes (Other)
  Sender: FDA-Public Use
  Company Number: US-PFIZER INC-2008065255

PATIENT
  Sex: Female
  Weight: 55.8 kg

DRUGS (4)
  1. LISINOPRIL [Concomitant]
     Indication: HYPERTENSION
     Dosage: UNK
  2. PHENYTOIN [Suspect]
     Indication: GRAND MAL CONVULSION
     Dosage: 100 MG, 4X/DAY
     Dates: start: 20070101
  3. INSULIN [Concomitant]
     Indication: DIABETES MELLITUS
     Dosage: UNK
  4. DILANTIN [Suspect]
     Indication: GRAND MAL CONVULSION
     Dosage: 200 MG, 2X/DAY
     Route: 048
     Dates: start: 19690101

REACTIONS (7)
  - FEELING JITTERY [None]
  - PARTIAL SEIZURES [None]
  - AGITATION [None]
  - HEADACHE [None]
  - BLOOD PRESSURE INCREASED [None]
  - ANXIETY [None]
  - DRUG INEFFECTIVE [None]
